FAERS Safety Report 4277161-0 (Version None)
Quarter: 2004Q1

REPORT INFORMATION
  Report Type: 
  Country: None (occurrence: None)
  Receive Date: 20040120
  Receipt Date: 20040109
  Transmission Date: 20041129
  Serious: Yes (Other)
  Sender: FDA-Public Use
  Company Number: HQWYE297826NOV03

PATIENT
  Age: 75 Year
  Sex: Female

DRUGS (2)
  1. TAZOCIN (PIPERACILLIN/TAZOBACTAM, INJECTION) [Suspect]
     Indication: URINARY TRACT INFECTION
     Dosage: 5 GRAMS DAILY, INTRAVENOUS
     Route: 042
     Dates: start: 20031114, end: 20031119
  2. TICLOPIDINE HCL [Concomitant]

REACTIONS (1)
  - RECTAL ULCER HAEMORRHAGE [None]
